FAERS Safety Report 7901464-9 (Version None)
Quarter: 2011Q4

REPORT INFORMATION
  Report Type: 
  Country: None (occurrence: None)
  Receive Date: 20111108
  Receipt Date: 20111031
  Transmission Date: 20120403
  Serious: Yes (Death)
  Sender: FDA-Public Use
  Company Number: US-ROCHE-1005296

PATIENT
  Sex: Female
  Weight: 49.94 kg

DRUGS (3)
  1. ALIMTA [Concomitant]
  2. AVASTIN [Suspect]
     Indication: NON-SMALL CELL LUNG CANCER
  3. CARBOPLATIN [Concomitant]

REACTIONS (3)
  - SUDDEN DEATH [None]
  - DEATH [None]
  - PERIPHERAL VASCULAR DISORDER [None]
